FAERS Safety Report 6737363-8 (Version None)
Quarter: 2010Q2

REPORT INFORMATION
  Report Type: 
  Country: None (occurrence: None)
  Receive Date: 20100524
  Receipt Date: 20100513
  Transmission Date: 20101027
  Serious: No
  Sender: FDA-Public Use
  Company Number: US-JNJFOC-20100505640

PATIENT
  Sex: Female
  Weight: 70.31 kg

DRUGS (5)
  1. DURAGESIC-100 [Suspect]
     Indication: BACK INJURY
     Route: 062
  2. DURAGESIC-100 [Suspect]
     Indication: PAIN
     Dosage: NDC: 50458-0094-05
     Route: 062
  3. DURAGESIC-100 [Suspect]
     Dosage: NDC: 50458-0094-05
     Route: 062
  4. HORMONES [Concomitant]
     Indication: HYSTERECTOMY
     Route: 048
  5. DIURETIC [Concomitant]
     Route: 048

REACTIONS (7)
  - APPLICATION SITE IRRITATION [None]
  - DRUG INEFFECTIVE [None]
  - DRY SKIN [None]
  - MENOPAUSE [None]
  - PAIN [None]
  - PRODUCT ADHESION ISSUE [None]
  - WRONG TECHNIQUE IN DRUG USAGE PROCESS [None]
